FAERS Safety Report 6801682-7 (Version None)
Quarter: 2010Q2

REPORT INFORMATION
  Report Type: 
  Country: None (occurrence: None)
  Receive Date: 20100629
  Receipt Date: 20100624
  Transmission Date: 20101027
  Serious: Yes (Hospitalization)
  Sender: FDA-Public Use
  Company Number: JP-BRISTOL-MYERS SQUIBB COMPANY-15143605

PATIENT
  Age: 41 Year
  Weight: 64 kg

DRUGS (3)
  1. CISPLATIN [Suspect]
     Indication: CERVIX CARCINOMA
     Dosage: ALSO GIVEN ON 21-MAY-2010.
     Route: 042
     Dates: start: 20100109
  2. S-1 [Suspect]
     Indication: CERVIX CARCINOMA
     Dosage: 120 MG:09JAN10-22JAN10,80 MG:21MAY-03JUN10
     Route: 048
     Dates: start: 20100109, end: 20100603
  3. MAGNESIUM OXIDE [Concomitant]
     Indication: CONSTIPATION
     Route: 048
     Dates: start: 20100111

REACTIONS (2)
  - DEEP VEIN THROMBOSIS [None]
  - EMBOLISM VENOUS [None]
